FAERS Safety Report 8003537 (Version 3)
Quarter: 2013Q3

REPORT INFORMATION
  Report Type: Spontaneous
  Country: US (occurrence: US)
  Receive Date: 20110622
  Receipt Date: 20130808
  Transmission Date: 20140515
  Serious: Yes (Hospitalization)
  Sender: FDA-Public Use
  Company Number: US-B.I. PHARMACEUTICALS,INC./RIDGEFIELD-2011-BP-15718BP

PATIENT
  Age: 71 Year
  Sex: Male

DRUGS (10)
  1. PRADAXA [Suspect]
     Indication: ATRIAL FIBRILLATION
     Dosage: 300 MG
     Route: 048
     Dates: start: 201102, end: 20110612
  2. BYSTOLIC [Concomitant]
     Dosage: 10 MG
     Route: 048
  3. GLIPIZIDE [Concomitant]
     Dosage: 10 MG
     Route: 048
  4. LIPITOR [Concomitant]
     Dosage: 10 MG
     Route: 048
  5. METFORMIN [Concomitant]
     Dosage: 1000 MG
     Route: 048
  6. MULTAQ [Concomitant]
     Dosage: 800 MG
     Route: 048
  7. NIASPAN ER [Concomitant]
     Dosage: 1000 MG
     Route: 048
  8. SYNTHROID [Concomitant]
     Dosage: 75 MCG
     Route: 048
  9. TRAMADOL [Concomitant]
     Dosage: 100 MG
     Route: 048
  10. TRICOR [Concomitant]
     Dosage: 145 MG
     Route: 048

REACTIONS (3)
  - Lower gastrointestinal haemorrhage [Recovered/Resolved]
  - Haematochezia [Recovered/Resolved]
  - Melaena [Recovered/Resolved]
